FAERS Safety Report 7089191-4 (Version None)
Quarter: 2010Q4

REPORT INFORMATION
  Report Type: 
  Country: None (occurrence: None)
  Receive Date: 20101029
  Receipt Date: 20101018
  Transmission Date: 20110411
  Serious: Yes (Other)
  Sender: FDA-Public Use
  Company Number: 2010P1002095

PATIENT
  Age: 72 Year
  Sex: Female

DRUGS (1)
  1. METRONIDAZOLE [Suspect]
     Indication: ABDOMINAL ABSCESS
     Dosage: 500 MG;BID;PO
     Route: 048

REACTIONS (2)
  - CEREBELLAR SYNDROME [None]
  - NEUROTOXICITY [None]
